FAERS Safety Report 10591877 (Version 1)
Quarter: 2014Q4

REPORT INFORMATION
  Report Type: Spontaneous
  Country: CH (occurrence: CH)
  Receive Date: 20141119
  Receipt Date: 20141119
  Transmission Date: 20150529
  Serious: Yes (Hospitalization, Other)
  Sender: FDA-Public Use
  Company Number: CH-ABBVIE-14K-151-1308592-00

PATIENT
  Age: 59 Year
  Sex: Female

DRUGS (12)
  1. SIMPONI [Suspect]
     Active Substance: GOLIMUMAB
     Indication: ARTHRALGIA
     Dosage: THREE TIMES IN TOTAL
     Route: 065
     Dates: start: 2013, end: 2013
  2. MAGNESIUM DIASPORAL [Concomitant]
     Indication: PRODUCT USED FOR UNKNOWN INDICATION
  3. HUMIRA [Suspect]
     Active Substance: ADALIMUMAB
     Indication: ARTHRALGIA
     Dosage: IN TOTAL 3 TIMES
     Route: 065
     Dates: start: 2013, end: 2014
  4. IMUREK [Suspect]
     Active Substance: AZATHIOPRINE
     Indication: ARTHRALGIA
     Route: 048
     Dates: start: 200611, end: 200702
  5. METHOTREXATE [Suspect]
     Active Substance: METHOTREXATE
     Indication: ARTHRALGIA
     Route: 048
     Dates: start: 2007, end: 2007
  6. CALCIMAGON [Concomitant]
     Active Substance: CALCIUM
     Indication: PRODUCT USED FOR UNKNOWN INDICATION
  7. URSODIOL. [Concomitant]
     Active Substance: URSODIOL
     Indication: PRODUCT USED FOR UNKNOWN INDICATION
  8. OMEPRAZOL [Concomitant]
     Active Substance: OMEPRAZOLE
     Indication: PRODUCT USED FOR UNKNOWN INDICATION
  9. IMUREK [Suspect]
     Active Substance: AZATHIOPRINE
     Route: 048
     Dates: start: 200709, end: 201209
  10. ACTEMRA [Suspect]
     Active Substance: TOCILIZUMAB
     Indication: ARTHRALGIA
     Route: 065
     Dates: start: 201405, end: 201408
  11. MEFENAMIC-ACID [Concomitant]
     Active Substance: MEFENAMIC ACID
     Indication: PRODUCT USED FOR UNKNOWN INDICATION
  12. PALEXIA [Concomitant]
     Active Substance: TAPENTADOL HYDROCHLORIDE
     Indication: PRODUCT USED FOR UNKNOWN INDICATION

REACTIONS (9)
  - Drug ineffective [Unknown]
  - Thrombocytopenia [Not Recovered/Not Resolved]
  - Acute myeloid leukaemia [Unknown]
  - Blast cells present [Unknown]
  - Drug ineffective [Unknown]
  - Drug ineffective [Unknown]
  - Bicytopenia [Unknown]
  - Leukopenia [Not Recovered/Not Resolved]
  - Drug ineffective [Unknown]

NARRATIVE: CASE EVENT DATE: 200611
